FAERS Safety Report 11157572 (Version 2)
Quarter: 2015Q2

REPORT INFORMATION
  Report Type: Spontaneous
  Country: US (occurrence: US)
  Receive Date: 20150603
  Receipt Date: 20150610
  Transmission Date: 20150821
  Serious: No
  Sender: FDA-Public Use
  Company Number: US-UCBSA-2015017610

PATIENT
  Sex: Female
  Weight: 88 kg

DRUGS (7)
  1. ATIVAN [Concomitant]
     Active Substance: LORAZEPAM
     Indication: ANXIETY
     Dosage: 1 MG, 3X/DAY (ONE TABLET 3 TIMES A DAY)
     Route: 048
     Dates: start: 2005
  2. AMBIEN [Concomitant]
     Active Substance: ZOLPIDEM TARTRATE
     Indication: SLEEP DISORDER
     Dosage: 10 MG, ONCE DAILY (ONE TABLET AT NIGHT)
     Route: 048
  3. KEPPRA XR [Suspect]
     Active Substance: LEVETIRACETAM
     Indication: SEIZURE
     Dosage: 500 MG, 2X/DAY (BID)
     Dates: start: 201409, end: 20150515
  4. VERAPAMIL [Concomitant]
     Active Substance: VERAPAMIL HYDROCHLORIDE
     Indication: CARDIAC DISORDER
     Dosage: 180 MG, ONCE DAILY (ONE IN A.M) AND 240 MG ONCE IN PM
     Route: 048
  5. SYMBICORT [Concomitant]
     Active Substance: BUDESONIDE\FORMOTEROL FUMARATE DIHYDRATE
     Indication: CHRONIC OBSTRUCTIVE PULMONARY DISEASE
     Dosage: ONE PUFF IN A.M. AND ONE PUFF IN P.M.
  6. NORCO [Concomitant]
     Active Substance: ACETAMINOPHEN\HYDROCODONE BITARTRATE
     Indication: HEADACHE
     Dosage: 7.25/325 MG (? TAB IN A.M. AND ? A TAB IN P.M.)
     Route: 048
     Dates: start: 201409
  7. KEPPRA XR [Suspect]
     Active Substance: LEVETIRACETAM
     Dosage: 500 MG, ONCE DAILY (QD)
     Dates: start: 20150515, end: 201505

REACTIONS (7)
  - Depression [Recovering/Resolving]
  - Dizziness [Recovered/Resolved]
  - Tic [Recovering/Resolving]
  - Crying [Not Recovered/Not Resolved]
  - Incision site infection [Recovered/Resolved]
  - Inappropriate schedule of drug administration [Unknown]
  - Anxiety [Recovering/Resolving]

NARRATIVE: CASE EVENT DATE: 2014
